FAERS Safety Report 16727642 (Version 3)
Quarter: 2020Q1

REPORT INFORMATION
  Report Type: Spontaneous
  Country: JP (occurrence: JP)
  Receive Date: 20190822
  Receipt Date: 20200131
  Transmission Date: 20200409
  Serious: Yes (Life-Threatening, Hospitalization, Other)
  Sender: FDA-Public Use
  Company Number: JP-ROCHE-2382512

PATIENT
  Age: 69 Year
  Sex: Male
  Weight: 68.4 kg

DRUGS (11)
  1. PREDNISOLONE. [Suspect]
     Active Substance: PREDNISOLONE
     Route: 065
     Dates: start: 20190316
  2. YERVOY [Suspect]
     Active Substance: IPILIMUMAB
     Indication: MALIGNANT MELANOMA
     Route: 041
     Dates: start: 20181217, end: 20190125
  3. DENOSINE [GANCICLOVIR] [Suspect]
     Active Substance: GANCICLOVIR
     Indication: CYTOMEGALOVIRUS INFECTION
     Route: 042
     Dates: start: 20190301, end: 20190329
  4. LASIX [Suspect]
     Active Substance: FUROSEMIDE
     Indication: HEPATIC FUNCTION ABNORMAL
     Route: 048
  5. OPDIVO [Suspect]
     Active Substance: NIVOLUMAB
     Indication: MALIGNANT MELANOMA
     Route: 041
     Dates: start: 20181217, end: 20190125
  6. PREDNISOLONE. [Suspect]
     Active Substance: PREDNISOLONE
     Route: 065
     Dates: start: 20190304
  7. PREDNISOLONE. [Suspect]
     Active Substance: PREDNISOLONE
     Route: 065
     Dates: start: 20190312
  8. PREDNISOLONE. [Suspect]
     Active Substance: PREDNISOLONE
     Route: 065
     Dates: start: 20190402
  9. PREDNISOLONE. [Suspect]
     Active Substance: PREDNISOLONE
     Route: 065
     Dates: start: 20190319
  10. SULFAMETHOXAZOLE/TRIMETHOPRIM [Suspect]
     Active Substance: SULFAMETHOXAZOLE\TRIMETHOPRIM
     Indication: PROPHYLAXIS
     Route: 048
     Dates: start: 20190228, end: 20190316
  11. PREDNISOLONE. [Suspect]
     Active Substance: PREDNISOLONE
     Indication: HEPATIC FUNCTION ABNORMAL
     Route: 065
     Dates: start: 20190416

REACTIONS (5)
  - Platelet count decreased [Recovering/Resolving]
  - Tumour lysis syndrome [Recovered/Resolved]
  - Tinea pedis [Unknown]
  - Peritonitis bacterial [Recovering/Resolving]
  - Hepatic failure [Not Recovered/Not Resolved]

NARRATIVE: CASE EVENT DATE: 20190208
